FAERS Safety Report 24855898 (Version 1)
Quarter: 2025Q1

REPORT INFORMATION
  Report Type: Spontaneous
  Country: US (occurrence: None)
  Receive Date: 20250117
  Receipt Date: 20250117
  Transmission Date: 20250409
  Serious: Yes (Hospitalization)
  Sender: FDA-CTU
  Company Number: None

PATIENT
  Sex: Male
  Weight: 129.8 kg

DRUGS (1)
  1. FLUOROURACIL [Suspect]
     Active Substance: FLUOROURACIL

REACTIONS (7)
  - Fatigue [None]
  - Asthenia [None]
  - Oedema peripheral [None]
  - Coronavirus test positive [None]
  - Cardiac failure [None]
  - Cardiac failure congestive [None]
  - Cardiomyopathy [None]

NARRATIVE: CASE EVENT DATE: 20250101
